FAERS Safety Report 11844315 (Version 1)
Quarter: 2015Q4

REPORT INFORMATION
  Report Type: Spontaneous
  Country: PT (occurrence: PT)
  Receive Date: 20151217
  Receipt Date: 20151217
  Transmission Date: 20160305
  Serious: Yes (Other)
  Sender: FDA-Public Use
  Company Number: PT-ACTAVIS-2015-27902

PATIENT
  Age: 44 Year
  Sex: Female
  Weight: 75 kg

DRUGS (5)
  1. CICLOFOSFAMIDA [Concomitant]
     Active Substance: CYCLOPHOSPHAMIDE
     Indication: BREAST CANCER
     Dosage: UNK (PART OF FEC PROTOCOL. DOSE NOT SPECIFIED, EVERY 3 WEEKS.)
     Route: 042
     Dates: start: 20150810, end: 20150921
  2. EPIRRUBICINA [Concomitant]
     Active Substance: EPIRUBICIN
     Indication: BREAST CANCER
     Dosage: UNK (PART OF FEC PROTOCOL. DOSE NOT SPECIFIED, EVERY 3 WEEKS.)
     Route: 042
     Dates: start: 20150810, end: 20150921
  3. DOCETAXEL ACTAVIS [Suspect]
     Active Substance: DOCETAXEL
     Indication: BREAST CANCER
     Dosage: 170 MG, 1/ THREE WEEKS (THIS ADMINISTRATION CORRESPONDS TO THE 2ND TREATMENT CYCLE.)
     Route: 042
     Dates: start: 20151105, end: 20151105
  4. FLUOROURACILO [Concomitant]
     Active Substance: FLUOROURACIL
     Indication: BREAST CANCER
     Dosage: UNK (PART OF FEC PROTOCOL. DOSE NOT SPECIFIED, EVERY 3 WEEKS.)
     Route: 042
     Dates: start: 20150810, end: 20150921
  5. TRASTUZUMAB [Concomitant]
     Active Substance: TRASTUZUMAB
     Indication: BREAST CANCER
     Dosage: UNK
     Route: 058
     Dates: start: 20151105, end: 20151105

REACTIONS (8)
  - Erythema [Recovered/Resolved]
  - Infusion site pain [Recovering/Resolving]
  - Tachycardia [Recovered/Resolved]
  - Injection site vesicles [Recovering/Resolving]
  - Injection site discolouration [Recovering/Resolving]
  - Feeling hot [Recovered/Resolved]
  - Injection site erythema [Recovering/Resolving]
  - Injection site pruritus [Recovering/Resolving]

NARRATIVE: CASE EVENT DATE: 20151105
